FAERS Safety Report 11871969 (Version 2)
Quarter: 2016Q1

REPORT INFORMATION
  Report Type: Spontaneous
  Country: IT (occurrence: IT)
  Receive Date: 20151228
  Receipt Date: 20160122
  Transmission Date: 20160526
  Serious: Yes (Other)
  Sender: FDA-Public Use
  Company Number: IT-BAYER-2015-493289

PATIENT
  Age: 82 Year
  Sex: Male

DRUGS (1)
  1. NEXAVAR [Suspect]
     Active Substance: SORAFENIB
     Dosage: 800 MG/DAY
     Route: 048
     Dates: start: 201008

REACTIONS (7)
  - Anaemia [None]
  - Diarrhoea [None]
  - Alanine aminotransferase increased [None]
  - Hyperglycaemia [None]
  - Aspartate aminotransferase increased [None]
  - Asthenia [None]
  - Metastatic renal cell carcinoma [None]

NARRATIVE: CASE EVENT DATE: 201111
